FAERS Safety Report 7603257-9 (Version None)
Quarter: 2011Q3

REPORT INFORMATION
  Report Type: 
  Country: None (occurrence: None)
  Receive Date: 20110711
  Receipt Date: 20110711
  Transmission Date: 20111222
  Serious: No
  Sender: FDA-Public Use
  Company Number: None

PATIENT
  Sex: Female
  Weight: 88.7689 kg

DRUGS (6)
  1. OXYBUTYNIN [Suspect]
     Indication: BLADDER DISORDER
     Dosage: OXYBUTIN (GENERIC) 15 MG 2X'S A DAY @ BEDTIME
     Dates: start: 20070101
  2. OXYBUTYNIN [Suspect]
     Indication: MUSCLE SPASMS
     Dosage: OXYBUTIN (GENERIC) 15 MG 2X'S A DAY @ BEDTIME
     Dates: start: 20070101
  3. OXYBUTYNIN [Suspect]
     Indication: BLADDER DISORDER
     Dosage: OXYBUTIN (GENERIC) 15 MG 2X'S A DAY @ BEDTIME
     Dates: start: 20090101
  4. OXYBUTYNIN [Suspect]
     Indication: MUSCLE SPASMS
     Dosage: OXYBUTIN (GENERIC) 15 MG 2X'S A DAY @ BEDTIME
     Dates: start: 20090101
  5. OXYBUTYNIN [Suspect]
     Indication: BLADDER DISORDER
     Dosage: OXYBUTIN (GENERIC) 15 MG 2X'S A DAY @ BEDTIME
     Dates: start: 20100101
  6. OXYBUTYNIN [Suspect]
     Indication: MUSCLE SPASMS
     Dosage: OXYBUTIN (GENERIC) 15 MG 2X'S A DAY @ BEDTIME
     Dates: start: 20100101

REACTIONS (1)
  - URTICARIA [None]
